FAERS Safety Report 6400097-3 (Version None)
Quarter: 2009Q4

REPORT INFORMATION
  Report Type: 
  Country: None (occurrence: None)
  Receive Date: 20091014
  Receipt Date: 20091005
  Transmission Date: 20100525
  Serious: Yes (Other)
  Sender: FDA-Public Use
  Company Number: B0596887A

PATIENT
  Age: 50 Year
  Sex: Male

DRUGS (7)
  1. PAXIL [Suspect]
     Dosage: 20MG PER DAY
     Route: 048
  2. CHLORPROMAZINE + PROMETHAZINE [Interacting]
     Dosage: 500MG PER DAY
     Route: 065
  3. ZOTEPINE [Suspect]
     Dosage: 300MG PER DAY
     Route: 048
  4. BROMPERIDOL [Concomitant]
     Dosage: 9MG PER DAY
     Route: 048
  5. MAGNESIUM OXIDE [Concomitant]
     Dosage: 3G PER DAY
     Route: 065
  6. SENNOSIDE [Concomitant]
     Dosage: 48MG PER DAY
     Route: 048
  7. RISPERIDONE [Concomitant]
     Dosage: 3MG PER DAY
     Route: 048

REACTIONS (4)
  - CONVULSION [None]
  - DRUG INTERACTION [None]
  - PULSE ABSENT [None]
  - RESPIRATORY ARREST [None]
